FAERS Safety Report 13902268 (Version 1)
Quarter: 2017Q3

REPORT INFORMATION
  Report Type: Report from Study
  Country: US (occurrence: US)
  Receive Date: 20170824
  Receipt Date: 20170824
  Transmission Date: 20171127
  Serious: No
  Sender: FDA-Public Use
  Company Number: US-AMGEN-USASL2017126805

PATIENT
  Age: 67 Year
  Sex: Female

DRUGS (4)
  1. ENBREL [Suspect]
     Active Substance: ETANERCEPT
     Indication: SJOGREN^S SYNDROME
     Dosage: UNK UNK, QWK
     Route: 065
     Dates: start: 201703
  2. ENBREL [Suspect]
     Active Substance: ETANERCEPT
     Indication: LUPUS-LIKE SYNDROME
  3. ENBREL [Suspect]
     Active Substance: ETANERCEPT
     Indication: ARTHRITIS
  4. ADVIL [Concomitant]
     Active Substance: IBUPROFEN
     Dosage: UNK

REACTIONS (2)
  - Peripheral swelling [Unknown]
  - Off label use [Unknown]

NARRATIVE: CASE EVENT DATE: 2017
